FAERS Safety Report 7348808-7 (Version None)
Quarter: 2011Q1

REPORT INFORMATION
  Report Type: 
  Country: None (occurrence: None)
  Receive Date: 20110314
  Receipt Date: 20110214
  Transmission Date: 20110831
  Serious: Yes (Hospitalization, Other)
  Sender: FDA-Public Use
  Company Number: US-BAYER-201011764NA

PATIENT
  Sex: Female
  Weight: 68 kg

DRUGS (12)
  1. METRONIDAZOLE [Concomitant]
     Dosage: 500 MG, UNK
     Route: 048
     Dates: start: 20080724
  2. VICODIN [Concomitant]
  3. YASMIN [Suspect]
     Indication: PRODUCT USED FOR UNKNOWN INDICATION
  4. FAMVIR [Concomitant]
     Dosage: 500 MG, UNK
     Route: 048
     Dates: start: 20080329
  5. XANAX [Concomitant]
  6. YAZ [Suspect]
     Indication: PRODUCT USED FOR UNKNOWN INDICATION
  7. ALPRAZOLAM [Concomitant]
     Dosage: 2 MG, UNK
     Route: 048
  8. GYNAZOLE [Concomitant]
     Dosage: 5.8 G, UNK
     Route: 048
     Dates: start: 20080723
  9. PROMETHAZINE [Concomitant]
     Dosage: 24 MG, UNK
     Route: 048
     Dates: start: 20070715
  10. LEVOTHYROXINE [Concomitant]
     Dosage: 75 UNK, UNK
     Route: 048
     Dates: start: 20080118
  11. FAMVIR [Concomitant]
     Dosage: 500 MG, UNK
     Route: 048
     Dates: start: 20070514
  12. FLUCONAZOLE [Concomitant]
     Dosage: 150 MG, UNK
     Route: 048
     Dates: start: 20080715

REACTIONS (5)
  - CHOLELITHIASIS [None]
  - NAUSEA [None]
  - ABDOMINAL PAIN [None]
  - VOMITING [None]
  - CHOLECYSTITIS CHRONIC [None]
